FAERS Safety Report 5673930-0 (Version None)
Quarter: 2008Q2

REPORT INFORMATION
  Report Type: 
  Country: None (occurrence: None)
  Receive Date: 20080228
  Receipt Date: 20070117
  Transmission Date: 20081010
  Serious: Yes (Death)
  Sender: FDA-Public Use
  Company Number: US200701003228

PATIENT
  Age: 51 Year
  Sex: Male

DRUGS (5)
  1. SYMBYAX [Suspect]
     Indication: BIPOLAR I DISORDER
     Dosage: DAILY (1/D), ORAL
     Route: 048
  2. PREGABALIN (PREGABALIN) [Concomitant]
  3. XANAX    /USA/(ALPRAZOLAM) [Concomitant]
  4. LORCET-HD [Concomitant]
  5. FOLIC ACID [Concomitant]

REACTIONS (2)
  - ABNORMAL BEHAVIOUR [None]
  - OVERDOSE [None]
